FAERS Safety Report 9129944 (Version 2)
Quarter: 2013Q2

REPORT INFORMATION
  Report Type: Spontaneous
  Country: AU (occurrence: AU)
  Receive Date: 20130228
  Receipt Date: 20130612
  Transmission Date: 20140414
  Serious: Yes (Other)
  Sender: FDA-Public Use
  Company Number: AU-PFIZER INC-2012332642

PATIENT
  Age: 80 Year
  Sex: Male
  Weight: 40 kg

DRUGS (11)
  1. RIFAMPICIN [Suspect]
     Indication: TUBERCULOSIS
     Dosage: 450 MG, DAILY
  2. RIFAMPICIN [Suspect]
     Dosage: (TREATMENT RE-STARTED ON DAY 18)
  3. ETHAMBUTOL [Suspect]
     Indication: TUBERCULOSIS
     Dosage: 600 MG, DAILY
  4. PANTOPRAZOLE [Suspect]
     Dosage: UNK
     Route: 065
  5. PYRAZINAMIDE [Suspect]
     Indication: TUBERCULOSIS
     Dosage: 500 MG, DAILY
  6. PYRAZINAMIDE [Suspect]
     Dosage: (TREATMENT RE-STARTED ON DAY 26)
  7. PARACETAMOL [Suspect]
     Dosage: UNK
     Route: 065
  8. ISONIAZID [Suspect]
     Indication: TUBERCULOSIS
     Dosage: 200 MG, DAILY
  9. ISONIAZID [Suspect]
     Dosage: (TREATMENT RE-STARTED ON DAY 18)
  10. MOXIFLOXACIN [Concomitant]
     Dosage: UNK
  11. AMIKACIN [Concomitant]
     Dosage: UNK

REACTIONS (2)
  - Hepatotoxicity [Recovering/Resolving]
  - International normalised ratio increased [Recovering/Resolving]
